FAERS Safety Report 14453398 (Version 1)
Quarter: 2018Q1

REPORT INFORMATION
  Report Type: Spontaneous
  Country: US (occurrence: US)
  Receive Date: 20180127
  Receipt Date: 20180127
  Transmission Date: 20180509
  Serious: No
  Sender: FDA-Public Use
  Company Number: None

PATIENT
  Age: 35 Year
  Sex: Female
  Weight: 71.1 kg

DRUGS (1)
  1. FLOMAX [Suspect]
     Active Substance: TAMSULOSIN HYDROCHLORIDE
     Indication: NEPHROLITHIASIS
     Dosage: ?          QUANTITY:1 CAPSULE(S);?
     Route: 048
     Dates: start: 20180122, end: 20180124

REACTIONS (21)
  - Pain in jaw [None]
  - Palpitations [None]
  - Hypophagia [None]
  - Chest pain [None]
  - Nasopharyngitis [None]
  - Movement disorder [None]
  - Irritability [None]
  - Pyrexia [None]
  - Insomnia [None]
  - Cold sweat [None]
  - Throat irritation [None]
  - Hyperhidrosis [None]
  - Headache [None]
  - Crying [None]
  - Depressed mood [None]
  - Therapy cessation [None]
  - Cough [None]
  - Neck pain [None]
  - Chills [None]
  - Haemoptysis [None]
  - Nasal congestion [None]
